FAERS Safety Report 5397408-7 (Version None)
Quarter: 2007Q3

REPORT INFORMATION
  Report Type: 
  Country: None (occurrence: None)
  Receive Date: 20070726
  Receipt Date: 20070723
  Transmission Date: 20080115
  Serious: Yes (Other)
  Sender: FDA-Public Use
  Company Number: PHBS2007ES12267

PATIENT
  Age: 73 Year
  Sex: Male

DRUGS (2)
  1. TORECAN [Suspect]
     Indication: VERTIGO
     Dosage: 6.5 MG, BID
     Route: 048
     Dates: start: 20070518
  2. LORATADINE [Concomitant]
     Dosage: 10 MG/D
     Route: 048
     Dates: start: 20070511

REACTIONS (3)
  - APRAXIA [None]
  - DYSPRAXIA [None]
  - SOMNOLENCE [None]
